FAERS Safety Report 6310208-6 (Version None)
Quarter: 2009Q3

REPORT INFORMATION
  Report Type: 
  Country: None (occurrence: None)
  Receive Date: 20090814
  Receipt Date: 20090806
  Transmission Date: 20100115
  Serious: Yes (Other)
  Sender: FDA-Public Use
  Company Number: DE-ELI_LILLY_AND_COMPANY-DE200908001527

PATIENT
  Age: 67 Year
  Sex: Male

DRUGS (4)
  1. XIGRIS [Suspect]
     Indication: SEPTIC SHOCK
     Dosage: 0.024 MG/KG, EVERY HOUR
     Route: 042
     Dates: start: 20090805
  2. NORADRENALINE [Concomitant]
     Dosage: UNK, UNKNOWN
     Route: 065
  3. DOBUTAMINE HCL [Concomitant]
     Dosage: UNK, UNKNOWN
     Route: 065
  4. ADRENALINE [Concomitant]
     Dosage: UNK, UNKNOWN
     Route: 065

REACTIONS (2)
  - ACTIVATED PARTIAL THROMBOPLASTIN TIME PROLONGED [None]
  - PLATELET COUNT DECREASED [None]
